FAERS Safety Report 5057337-5 (Version None)
Quarter: 2006Q3

REPORT INFORMATION
  Report Type: 
  Country: None (occurrence: None)
  Receive Date: 20060721
  Receipt Date: 20050817
  Transmission Date: 20061208
  Serious: No
  Sender: FDA-Public Use
  Company Number: US-GLAXOSMITHKLINE-A0570632A

PATIENT
  Age: 67 Year
  Sex: Male

DRUGS (9)
  1. AVANDIA [Suspect]
     Dosage: 4MG TWICE PER DAY
     Route: 048
     Dates: start: 20050817
  2. VASOTEC [Concomitant]
  3. DILTIA XT [Concomitant]
  4. LIPITOR [Concomitant]
  5. ALPRAZOLAM [Concomitant]
  6. ATENOLOL [Concomitant]
  7. TYLENOL W/ CODEINE NO. 3 [Concomitant]
  8. METFORMIN [Concomitant]
  9. PRILOSEC [Concomitant]

REACTIONS (2)
  - HYPOAESTHESIA [None]
  - PARAESTHESIA [None]
